FAERS Safety Report 15753854 (Version 1)
Quarter: 2018Q4

REPORT INFORMATION
  Report Type: Spontaneous
  Country: FR (occurrence: FR)
  Receive Date: 20181222
  Receipt Date: 20181222
  Transmission Date: 20190205
  Serious: Yes (Hospitalization)
  Sender: FDA-Public Use
  Company Number: PHHY2018FR191092

PATIENT
  Age: 61 Year
  Sex: Female
  Weight: 58 kg

DRUGS (1)
  1. ACIDE ZOLEDRONIQUE SANDOZ [Suspect]
     Active Substance: ZOLEDRONIC ACID
     Indication: OSTEOPOROSIS
     Dosage: 5 MG, UNK
     Route: 042

REACTIONS (2)
  - Arthralgia [Not Recovered/Not Resolved]
  - Hyperthermia [Recovered/Resolved]

NARRATIVE: CASE EVENT DATE: 20181108
